FAERS Safety Report 16860783 (Version 1)
Quarter: 2019Q3

REPORT INFORMATION
  Report Type: Report from Study
  Country: US (occurrence: US)
  Receive Date: 20190927
  Receipt Date: 20190927
  Transmission Date: 20191005
  Serious: Yes (Hospitalization)
  Sender: FDA-Public Use
  Company Number: US-JNJFOC-20190934555

PATIENT
  Age: 60 Year
  Sex: Male

DRUGS (23)
  1. FARXIGA [Concomitant]
     Active Substance: DAPAGLIFLOZIN PROPANEDIOL
  2. FOMEPIZOLE. [Concomitant]
     Active Substance: FOMEPIZOLE
  3. KENALOG [Concomitant]
     Active Substance: TRIAMCINOLONE ACETONIDE
  4. IBUPROFEN. [Concomitant]
     Active Substance: IBUPROFEN
  5. MAGNESIUM [Concomitant]
     Active Substance: MAGNESIUM
  6. URSODIOL. [Concomitant]
     Active Substance: URSODIOL
  7. IMBRUVICA [Suspect]
     Active Substance: IBRUTINIB
     Indication: CHRONIC GRAFT VERSUS HOST DISEASE
     Dosage: 140 MG, QD
     Route: 048
     Dates: start: 20190808, end: 2019
  8. DULOXETINE. [Concomitant]
     Active Substance: DULOXETINE
  9. METOPROLOL. [Concomitant]
     Active Substance: METOPROLOL
  10. NORCO [Concomitant]
     Active Substance: ACETAMINOPHEN\HYDROCODONE BITARTRATE
  11. PREDNISONE. [Concomitant]
     Active Substance: PREDNISONE
  12. SINGULAIR [Concomitant]
     Active Substance: MONTELUKAST SODIUM
  13. CRESTOR [Concomitant]
     Active Substance: ROSUVASTATIN CALCIUM
  14. INSULIN [Concomitant]
     Active Substance: INSULIN NOS
  15. LASIX [Concomitant]
     Active Substance: FUROSEMIDE
  16. PENICILLIN VK [Concomitant]
     Active Substance: PENICILLIN V POTASSIUM
  17. IMBRUVICA [Suspect]
     Active Substance: IBRUTINIB
     Dosage: QOD, (EVERY OTHER DAY)
     Route: 065
  18. BENADRYL [Concomitant]
     Active Substance: DIPHENHYDRAMINE HYDROCHLORIDE
  19. CALCIUM [Concomitant]
     Active Substance: CALCIUM
  20. VITAMIN D                          /00107901/ [Concomitant]
     Active Substance: ERGOCALCIFEROL
  21. FLOMAX [Concomitant]
     Active Substance: TAMSULOSIN HYDROCHLORIDE
  22. NOXAFIL [Concomitant]
     Active Substance: POSACONAZOLE
  23. FOLIC ACID. [Concomitant]
     Active Substance: FOLIC ACID

REACTIONS (2)
  - Blood count abnormal [Recovered/Resolved]
  - Pyrexia [Recovered/Resolved]

NARRATIVE: CASE EVENT DATE: 201909
